FAERS Safety Report 5484584-0 (Version None)
Quarter: 2007Q4

REPORT INFORMATION
  Report Type: 
  Country: None (occurrence: None)
  Receive Date: 20071012
  Receipt Date: 20071002
  Transmission Date: 20080405
  Serious: Yes (Other)
  Sender: FDA-Public Use
  Company Number: US-PFIZER INC-2007083216

PATIENT
  Age: 44 Year
  Sex: Female

DRUGS (3)
  1. PROVERA [Suspect]
  2. CES [Suspect]
  3. REBETRON [Suspect]

REACTIONS (13)
  - ANTINUCLEAR ANTIBODY POSITIVE [None]
  - BREAST PAIN [None]
  - BURSITIS [None]
  - CHILLS [None]
  - DISTURBANCE IN ATTENTION [None]
  - DIZZINESS [None]
  - DRY EYE [None]
  - FATIGUE [None]
  - MENORRHAGIA [None]
  - NAUSEA [None]
  - NERVOUS SYSTEM DISORDER [None]
  - PALPITATIONS [None]
  - RASH [None]
